FAERS Safety Report 4336557-9 (Version None)
Quarter: 2004Q2

REPORT INFORMATION
  Report Type: 
  Country: None (occurrence: None)
  Receive Date: 20040407
  Receipt Date: 20040205
  Transmission Date: 20050107
  Serious: Yes (Hospitalization, Other)
  Sender: FDA-Public Use
  Company Number: KII-2004-0009234

PATIENT
  Age: 43 Year
  Sex: Female

DRUGS (6)
  1. MORPHINE SULFATE [Suspect]
     Indication: PAIN
  2. PHENOBARBITAL TAB [Suspect]
     Indication: DRUG USE FOR UNKNOWN INDICATION
  3. BENZODIAZEPINE DERIVATIVES () [Suspect]
     Indication: DRUG USE FOR UNKNOWN INDICATION
  4. LITHIUM CARBONATE [Suspect]
     Indication: DRUG USE FOR UNKNOWN INDICATION
  5. ANTIEPILEPTICS() [Suspect]
     Indication: DRUG USE FOR UNKNOWN INDICATION
  6. OPIOIDS () [Suspect]
     Indication: DRUG USE FOR UNKNOWN INDICATION

REACTIONS (6)
  - DRUG SCREEN POSITIVE [None]
  - LUNG INFILTRATION [None]
  - MENTAL STATUS CHANGES [None]
  - MIOSIS [None]
  - OVERDOSE [None]
  - PNEUMONIA [None]
